FAERS Safety Report 4276788-X (Version None)
Quarter: 2004Q1

REPORT INFORMATION
  Report Type: 
  Country: None (occurrence: None)
  Receive Date: 20040120
  Receipt Date: 20031218
  Transmission Date: 20041129
  Serious: Yes (Life-Threatening, Hospitalization)
  Sender: FDA-Public Use
  Company Number: 200313816GDS

PATIENT
  Age: 36 Year
  Sex: Male

DRUGS (1)
  1. LEVITRA [Suspect]
     Indication: ERECTILE DYSFUNCTION
     Dosage: 10MG, TOTAL DAILY, ORAL
     Route: 048
     Dates: start: 20031101

REACTIONS (2)
  - CEREBRAL HAEMORRHAGE [None]
  - MENINGITIS TUBERCULOUS [None]
